FAERS Safety Report 6084139-3 (Version None)
Quarter: 2009Q1

REPORT INFORMATION
  Report Type: 
  Country: None (occurrence: None)
  Receive Date: 20090204
  Receipt Date: 20080903
  Transmission Date: 20090719
  Serious: Yes (Hospitalization)
  Sender: FDA-Public Use
  Company Number: 278007

PATIENT
  Age: 13 Year
  Sex: Male
  Weight: 68 kg

DRUGS (3)
  1. NOVOLOG [Suspect]
     Indication: TYPE 1 DIABETES MELLITUS
     Dosage: TID, SUBCUTANEOUS
     Route: 058
     Dates: start: 20070201
  2. LANTUS [Suspect]
     Indication: TYPE 1 DIABETES MELLITUS
     Dosage: 25 LU, BID, SUBCUTANEOUS
     Route: 058
  3. ALBUTEROL /00139501/ (SALBUTAMOL) [Concomitant]

REACTIONS (1)
  - HYPERGLYCAEMIA [None]
